FAERS Safety Report 20664775 (Version 19)
Quarter: 2024Q3

REPORT INFORMATION
  Report Type: Report from Study
  Country: GB (occurrence: GB)
  Receive Date: 20220401
  Receipt Date: 20240924
  Transmission Date: 20241017
  Serious: Yes (Life-Threatening, Hospitalization, Other)
  Sender: TAKEDA
  Company Number: GB-TAKEDA-2021TUS078183

PATIENT
  Age: 64 Year
  Sex: Male

DRUGS (2)
  1. ICATIBANT [Suspect]
     Active Substance: ICATIBANT ACETATE
     Indication: Hereditary angioedema
     Dosage: 30 MILLIGRAM
     Route: 058
  2. ICATIBANT [Suspect]
     Active Substance: ICATIBANT ACETATE
     Indication: Hereditary angioedema
     Dosage: 30 MILLIGRAM
     Route: 058

REACTIONS (10)
  - Illness [Not Recovered/Not Resolved]
  - Hereditary angioedema [Not Recovered/Not Resolved]
  - Drug dependence [Unknown]
  - Stress [Unknown]
  - Pain [Not Recovered/Not Resolved]
  - Product use issue [Unknown]
  - Product prescribing issue [Unknown]
  - Incorrect product administration duration [Unknown]
  - Product packaging difficult to open [Unknown]
  - Injury associated with device [Unknown]

NARRATIVE: CASE EVENT DATE: 20240111
